FAERS Safety Report 7142486-8 (Version None)
Quarter: 2010Q4

REPORT INFORMATION
  Report Type: 
  Country: None (occurrence: None)
  Receive Date: 20101207
  Receipt Date: 20101201
  Transmission Date: 20110411
  Serious: Yes (Hospitalization, Other)
  Sender: FDA-Public Use
  Company Number: IE-ROXANE LABORATORIES, INC.-2010-RO-01566RO

PATIENT
  Age: 57 Year
  Sex: Female

DRUGS (6)
  1. AZATHIOPRINE [Suspect]
     Dosage: 75 MG
  2. CLARITHROMYCIN [Suspect]
     Indication: PNEUMONIA
  3. TACROLIMUS [Suspect]
     Dosage: 6 MG
  4. TACROLIMUS [Suspect]
  5. PREDNISOLONE [Suspect]
     Dosage: 10 MG
  6. AMOXICILLIN [Suspect]
     Indication: PNEUMONIA

REACTIONS (6)
  - DIVERTICULUM [None]
  - HAEMOLYTIC URAEMIC SYNDROME [None]
  - LARGE INTESTINE PERFORATION [None]
  - PNEUMONIA [None]
  - PULMONARY EMBOLISM [None]
  - VENTRICULAR TACHYCARDIA [None]
